FAERS Safety Report 5965174-X (Version None)
Quarter: 2008Q4

REPORT INFORMATION
  Report Type: 
  Country: None (occurrence: None)
  Receive Date: 20081125
  Receipt Date: 20081119
  Transmission Date: 20090506
  Serious: Yes (Hospitalization)
  Sender: FDA-Public Use
  Company Number: US-GENENTECH-271264

PATIENT
  Sex: Male
  Weight: 80.2 kg

DRUGS (8)
  1. BEVACIZUMAB [Suspect]
     Indication: GLIOBLASTOMA MULTIFORME
     Dosage: 10 MG/KG, Q2W
     Dates: start: 20081008, end: 20081022
  2. TANDUTINIB [Suspect]
     Indication: GLIOBLASTOMA MULTIFORME
     Dosage: 500 MG, BID
     Dates: start: 20080921, end: 20081103
  3. KEPPRA [Concomitant]
     Indication: DRUG USE FOR UNKNOWN INDICATION
     Dosage: 500 MG, BID
  4. DECADRON [Concomitant]
     Indication: DRUG USE FOR UNKNOWN INDICATION
     Dosage: 1 MG, BID
  5. ACIPHEX [Concomitant]
     Indication: DRUG USE FOR UNKNOWN INDICATION
  6. ZOCOR [Concomitant]
     Indication: DRUG USE FOR UNKNOWN INDICATION
  7. LOPERAMIDE HCL [Concomitant]
     Indication: DIARRHOEA
     Dosage: 2 MG, PRN
  8. GRANISETRON [Concomitant]
     Indication: NAUSEA
     Dosage: 1 MG, PRN

REACTIONS (3)
  - ABSCESS [None]
  - DIVERTICULITIS [None]
  - INFECTION [None]
